FAERS Safety Report 23289668 (Version 1)
Quarter: 2023Q4

REPORT INFORMATION
  Report Type: Spontaneous
  Country: US (occurrence: US)
  Receive Date: 20231212
  Receipt Date: 20231212
  Transmission Date: 20240109
  Serious: Yes (Other)
  Sender: FDA-Public Use
  Company Number: US-ORGANON-O2311USA000516

PATIENT
  Age: 17 Year
  Sex: Female
  Weight: 87 kg

DRUGS (1)
  1. NEXPLANON [Suspect]
     Active Substance: ETONOGESTREL
     Indication: Contraception
     Dosage: 1 IMPLANT, LEFT ARM
     Route: 059
     Dates: start: 20220614, end: 20231102

REACTIONS (3)
  - Monoplegia [Recovered/Resolved]
  - Implant site hypoaesthesia [Recovered/Resolved]
  - Implant site paraesthesia [Recovered/Resolved]

NARRATIVE: CASE EVENT DATE: 20230314
